FAERS Safety Report 5045820-8 (Version None)
Quarter: 2006Q2

REPORT INFORMATION
  Report Type: 
  Country: None (occurrence: None)
  Receive Date: 20060601
  Receipt Date: 20060324
  Transmission Date: 20061013
  Serious: No
  Sender: FDA-Public Use
  Company Number: 2005-BP-21934BP

PATIENT
  Sex: Female

DRUGS (8)
  1. SPIRIVA [Suspect]
     Indication: CHRONIC OBSTRUCTIVE PULMONARY DISEASE
     Dosage: 18 MCG (18 MCG, ONCE DAILY), IH
     Route: 055
     Dates: start: 20050901
  2. SPIRIVA [Suspect]
     Indication: EMPHYSEMA
     Dosage: 18 MCG (18 MCG, ONCE DAILY), IH
     Route: 055
     Dates: start: 20050901
  3. SPIRIVA [Suspect]
  4. SPIRIVA [Suspect]
  5. SEROQUEL [Concomitant]
  6. GEOCON [Concomitant]
  7. CELEXA [Concomitant]
  8. DYAZIDE [Concomitant]

REACTIONS (2)
  - DRUG INEFFECTIVE [None]
  - DYSGEUSIA [None]
